FAERS Safety Report 9038862 (Version 1)
Quarter: 2013Q1

REPORT INFORMATION
  Report Type: Spontaneous
  Country: US (occurrence: US)
  Receive Date: 20130129
  Receipt Date: 20130129
  Transmission Date: 20140127
  Serious: No
  Sender: FDA-Public Use
  Company Number: US-009507513-1301USA011532

PATIENT
  Age: 50 Year
  Sex: Female

DRUGS (11)
  1. COSOPT PF [Suspect]
     Route: 047
  2. COSOPT PF [Suspect]
     Dosage: UNK
     Route: 047
  3. DORZOLAMIDE HYDROCHLORIDE (+) TIMOLOL MALEATE [Suspect]
     Dosage: 1 DROP TWICE A DAY IN BOTH EYES
     Dates: start: 20130113, end: 20130116
  4. LOTEMAX [Concomitant]
  5. DIAZEPAM [Concomitant]
  6. ALPHAGAN P [Concomitant]
  7. BROMDAY [Concomitant]
  8. RESTASIS [Concomitant]
  9. LIPITOR [Concomitant]
  10. LEVOTHYROXINE SODIUM [Concomitant]
  11. ESTRADIOL [Concomitant]

REACTIONS (2)
  - Vision blurred [Not Recovered/Not Resolved]
  - Vision blurred [Not Recovered/Not Resolved]
